FAERS Safety Report 6403546-X (Version None)
Quarter: 2009Q4

REPORT INFORMATION
  Report Type: 
  Country: None (occurrence: None)
  Receive Date: 20091016
  Receipt Date: 20090618
  Transmission Date: 20100525
  Serious: Yes (Other)
  Sender: FDA-Public Use
  Company Number: US-AVENTIS-200915451US

PATIENT
  Age: 68 Year
  Sex: Female

DRUGS (4)
  1. TAXOTERE [Suspect]
     Dosage: DOSE: UNK
     Route: 042
  2. CYCLOPHOSPHAMIDE [Suspect]
     Dosage: DOSE: UNK
  3. HERCEPTIN [Suspect]
     Dosage: DOSE: UNK
  4. OTHER RESPIRATORY SYSTEM PRODUCTS [Concomitant]
     Dosage: DOSE: UNK

REACTIONS (3)
  - HEPATIC FAILURE [None]
  - INTERSTITIAL LUNG DISEASE [None]
  - RENAL FAILURE [None]
